FAERS Safety Report 21959728 (Version 1)
Quarter: 2023Q1

REPORT INFORMATION
  Report Type: Other
  Country: IT (occurrence: IT)
  Receive Date: 20230206
  Receipt Date: 20230206
  Transmission Date: 20230418
  Serious: Yes (Hospitalization, Other)
  Sender: FDA-Public Use
  Company Number: None

PATIENT
  Age: 85 Year
  Sex: Female
  Weight: 100 kg

DRUGS (9)
  1. FETROJA [Suspect]
     Active Substance: CEFIDEROCOL SULFATE TOSYLATE
     Indication: Pneumonia
     Dosage: 2 G, TID
     Route: 042
     Dates: start: 20230113, end: 20230116
  2. COLISTIMETHATE SODIUM [Suspect]
     Active Substance: COLISTIMETHATE SODIUM
     Indication: Pneumonia
     Dosage: UNK, 1,000,000 AEROSOLS EVERY 8 HOURS
     Dates: start: 20230113, end: 20230116
  3. BISOPROLOL [Concomitant]
     Active Substance: BISOPROLOL
     Indication: Product used for unknown indication
     Dosage: UNK
     Route: 065
  4. ENOXAPARIN SODIUM [Concomitant]
     Active Substance: ENOXAPARIN SODIUM
     Indication: Product used for unknown indication
     Dosage: UNK
     Route: 065
  5. GABAPENTIN [Concomitant]
     Active Substance: GABAPENTIN
     Indication: Product used for unknown indication
     Dosage: UNK
     Route: 065
  6. LASIX [Concomitant]
     Active Substance: FUROSEMIDE
     Indication: Product used for unknown indication
     Dosage: UNK
     Route: 065
  7. NORVASC [Concomitant]
     Active Substance: AMLODIPINE BESYLATE
     Indication: Product used for unknown indication
     Dosage: UNK
     Route: 065
  8. PANTOPRAZOLE SODIUM [Concomitant]
     Active Substance: PANTOPRAZOLE SODIUM
     Indication: Product used for unknown indication
     Dosage: UNK
     Route: 065
  9. RAMIPRIL [Concomitant]
     Active Substance: RAMIPRIL
     Indication: Product used for unknown indication
     Dosage: UNK
     Route: 065

REACTIONS (3)
  - Laryngeal oedema [Recovering/Resolving]
  - Hypoxia [Recovering/Resolving]
  - Flushing [Recovering/Resolving]

NARRATIVE: CASE EVENT DATE: 20230116
